FAERS Safety Report 8168440-5 (Version None)
Quarter: 2012Q1

REPORT INFORMATION
  Report Type: 
  Country: None (occurrence: None)
  Receive Date: 20120227
  Receipt Date: 20120217
  Transmission Date: 20120608
  Serious: No
  Sender: FDA-Public Use
  Company Number: US-NOVOPROD-343270

PATIENT
  Age: 51 Year
  Sex: Female
  Weight: 74.8 kg

DRUGS (2)
  1. LIRAGLUTIDE FLEXPEN [Suspect]
     Indication: OBESITY
     Dosage: 1.8 MG, QD
     Route: 058
     Dates: start: 20110927, end: 20120116
  2. LIRAGLUTIDE FLEXPEN [Suspect]
     Indication: TYPE 2 DIABETES MELLITUS
     Dosage: 1.8 MG, QD
     Route: 058
     Dates: start: 20120124

REACTIONS (2)
  - LIPASE INCREASED [None]
  - AMYLASE INCREASED [None]
